FAERS Safety Report 6002017-2 (Version None)
Quarter: 2008Q4

REPORT INFORMATION
  Report Type: 
  Country: None (occurrence: None)
  Receive Date: 20081212
  Receipt Date: 20081128
  Transmission Date: 20090506
  Serious: Yes (Death, Hospitalization)
  Sender: FDA-Public Use
  Company Number: KV200800873

PATIENT
  Age: 49 Year
  Sex: Male

DRUGS (4)
  1. MORPHINE SULFATE [Suspect]
     Indication: PAIN
     Dosage: 6 TABLETS PER DAY, ORAL
     Route: 048
  2. MS CONTIN [Concomitant]
  3. MORPHINE SULFATE [Concomitant]
  4. HYDROCHLOROTHIAZIDE [Concomitant]

REACTIONS (5)
  - DEPRESSED LEVEL OF CONSCIOUSNESS [None]
  - FALL [None]
  - OVERDOSE [None]
  - PNEUMONIA ASPIRATION [None]
  - PRODUCT QUALITY ISSUE [None]
